FAERS Safety Report 15319390 (Version 2)
Quarter: 2018Q3

REPORT INFORMATION
  Report Type: Spontaneous
  Country: FR (occurrence: FR)
  Receive Date: 20180827
  Receipt Date: 20180827
  Transmission Date: 20181010
  Serious: Yes (Death)
  Sender: FDA-Public Use
  Company Number: FR-B.I. PHARMACEUTICALS,INC./RIDGEFIELD-2018-BI-042566

PATIENT
  Age: 85 Year
  Sex: Female

DRUGS (1)
  1. PRAXBIND [Suspect]
     Active Substance: IDARUCIZUMAB
     Indication: PROCOAGULANT THERAPY
     Route: 042
     Dates: start: 20180111, end: 20180111

REACTIONS (4)
  - Rectal haemorrhage [Fatal]
  - Haematemesis [Fatal]
  - Epistaxis [Fatal]
  - Melaena [Fatal]

NARRATIVE: CASE EVENT DATE: 201801
